FAERS Safety Report 5083403-4 (Version None)
Quarter: 2006Q3

REPORT INFORMATION
  Report Type: 
  Country: None (occurrence: None)
  Receive Date: 20060816
  Receipt Date: 20060816
  Transmission Date: 20061208
  Serious: No
  Sender: FDA-Public Use
  Company Number: None

PATIENT
  Sex: Female

DRUGS (1)
  1. ENBREL [Suspect]
     Dosage: 50MG 1 X / WEEK  SQ
     Route: 058
     Dates: start: 19990101, end: 20060706

REACTIONS (4)
  - BLINDNESS UNILATERAL [None]
  - MACULOPATHY [None]
  - RETINAL ARTERY OCCLUSION [None]
  - RETINAL DISORDER [None]
